FAERS Safety Report 5421111-8 (Version None)
Quarter: 2007Q3

REPORT INFORMATION
  Report Type: 
  Country: None (occurrence: None)
  Receive Date: 20070821
  Receipt Date: 20070813
  Transmission Date: 20080115
  Serious: Yes (Hospitalization)
  Sender: FDA-Public Use
  Company Number: SE-JNJFOC-20070803531

PATIENT
  Age: 21 Year
  Sex: Male

DRUGS (4)
  1. CONCERTA [Suspect]
     Dosage: PRESCRIBED DOSE UNKNOWN
  2. CONCERTA [Suspect]
     Indication: DRUG USE FOR UNKNOWN INDICATION
     Dosage: TOOK 10 TABLETS 36MG (360MG TOTAL)
  3. RITALIN [Suspect]
     Indication: DRUG USE FOR UNKNOWN INDICATION
  4. ZOLPIDEM TARTRATE [Suspect]
     Indication: DRUG USE FOR UNKNOWN INDICATION

REACTIONS (9)
  - AGITATION [None]
  - BLOOD PRESSURE INCREASED [None]
  - DISORIENTATION [None]
  - DYSARTHRIA [None]
  - HALLUCINATION [None]
  - OVERDOSE [None]
  - PHOTOPHOBIA [None]
  - RESTLESSNESS [None]
  - TACHYCARDIA [None]
